FAERS Safety Report 7647987-1 (Version None)
Quarter: 2011Q3

REPORT INFORMATION
  Report Type: 
  Country: None (occurrence: None)
  Receive Date: 20110801
  Receipt Date: 20110620
  Transmission Date: 20111222
  Serious: No
  Sender: FDA-Public Use
  Company Number: US-ABBOTT-11P-163-0804557-00

PATIENT
  Sex: Female

DRUGS (1)
  1. PANCREATIN TRIPLE STRENGTH CAP [Suspect]
     Indication: WEIGHT DECREASED
     Dosage: DAILY DOSE: 9 DOSAGE FORM
     Route: 065
     Dates: start: 20110201

REACTIONS (1)
  - DRUG INEFFECTIVE [None]
